FAERS Safety Report 25872630 (Version 2)
Quarter: 2025Q4

REPORT INFORMATION
  Report Type: Report from Study
  Country: US (occurrence: US)
  Receive Date: 20251002
  Receipt Date: 20251013
  Transmission Date: 20260118
  Serious: Yes (Other)
  Sender: ABBVIE
  Company Number: US-ABBVIE-6482572

PATIENT
  Age: 68 Year
  Sex: Female

DRUGS (1)
  1. CREON [Suspect]
     Active Substance: PANCRELIPASE AMYLASE\PANCRELIPASE LIPASE\PANCRELIPASE PROTEASE
     Indication: Pancreatic failure
     Route: 048
     Dates: start: 20230501

REACTIONS (4)
  - Arteriosclerosis coronary artery [Not Recovered/Not Resolved]
  - Diarrhoea [Unknown]
  - Epistaxis [Recovering/Resolving]
  - Multiple allergies [Unknown]

NARRATIVE: CASE EVENT DATE: 20250101
